FAERS Safety Report 7545706-0 (Version None)
Quarter: 2011Q2

REPORT INFORMATION
  Report Type: 
  Country: None (occurrence: None)
  Receive Date: 20110524
  Receipt Date: 20110214
  Transmission Date: 20111010
  Serious: No
  Sender: FDA-Public Use
  Company Number: 027441

PATIENT
  Sex: Female
  Weight: 70.3 kg

DRUGS (6)
  1. PENTASA [Concomitant]
  2. LOESTRIN 1.5/30 [Concomitant]
  3. CIMZIA [Suspect]
     Indication: CROHN'S DISEASE
     Dosage: (SUBCUTANEOUS) ; (2 SHOTS SUBCUTANEOUS)
     Route: 058
     Dates: start: 20101201
  4. CIMZIA [Suspect]
     Indication: CROHN'S DISEASE
     Dosage: (SUBCUTANEOUS) ; (2 SHOTS SUBCUTANEOUS)
     Route: 058
     Dates: start: 20101001
  5. CITRACAL [Concomitant]
  6. FISH OIL [Concomitant]

REACTIONS (4)
  - FREQUENT BOWEL MOVEMENTS [None]
  - FATIGUE [None]
  - DEFAECATION URGENCY [None]
  - ABDOMINAL PAIN [None]
